FAERS Safety Report 8791031 (Version 1)
Quarter: 2012Q4

REPORT INFORMATION
  Report Type: Spontaneous
  Country: US (occurrence: None)
  Receive Date: 20120906
  Receipt Date: 20120906
  Transmission Date: 20130627
  Serious: Yes (Life-Threatening, Hospitalization)
  Sender: FDA-Public Use
  Company Number: PRED20120049

PATIENT
  Age: 52 Year
  Sex: Female

DRUGS (5)
  1. PREDNISONE (PREDNISONE) [Suspect]
     Indication: ACUTE LYMPHOCYTIC LEUKAEMIA
  2. CYCLOPHOSPHAMIDE [Suspect]
  3. DAUNORUBICIN [Suspect]
  4. VINCRISTINE [Suspect]
  5. SOLU MEDROL [Suspect]

REACTIONS (14)
  - Posterior reversible encephalopathy syndrome [None]
  - Tumour lysis syndrome [None]
  - Hypertension [None]
  - Hallucination, visual [None]
  - Lethargy [None]
  - White blood cell count decreased [None]
  - Insomnia [None]
  - Neutropenia [None]
  - Blood lactate dehydrogenase increased [None]
  - Hypomagnesaemia [None]
  - Grand mal convulsion [None]
  - Anxiety [None]
  - Brain oedema [None]
  - Abdominal pain [None]
